FAERS Safety Report 17850917 (Version 1)
Quarter: 2020Q2

REPORT INFORMATION
  Report Type: Spontaneous
  Country: US (occurrence: US)
  Receive Date: 20200602
  Receipt Date: 20200602
  Transmission Date: 20200714
  Serious: Yes (Other)
  Sender: FDA-Public Use
  Company Number: None

PATIENT
  Age: 48 Year
  Sex: Female

DRUGS (8)
  1. NO DRUG NAME [Concomitant]
  2. NO DRUG NAME [Concomitant]
  3. NO DRUG NAME [Concomitant]
  4. DOTTI [Suspect]
     Active Substance: ESTRADIOL
  5. NO DRUG NAME [Concomitant]
  6. NO DRUG NAME [Concomitant]
  7. NO DRUG NAME [Concomitant]
  8. NO DRUG NAME [Concomitant]

REACTIONS (2)
  - Acne [None]
  - Product substitution issue [None]

NARRATIVE: CASE EVENT DATE: 20200515
